FAERS Safety Report 7949284-3 (Version None)
Quarter: 2011Q4

REPORT INFORMATION
  Report Type: 
  Country: None (occurrence: None)
  Receive Date: 20111130
  Receipt Date: 20111124
  Transmission Date: 20120403
  Serious: Yes (Other)
  Sender: FDA-Public Use
  Company Number: TW-ROCHE-1000773

PATIENT
  Sex: Female

DRUGS (5)
  1. ARANESP [Suspect]
     Indication: NEPHROGENIC ANAEMIA
     Route: 058
     Dates: start: 20090814, end: 20100521
  2. RECORMON [Suspect]
     Dates: start: 20101019, end: 20110101
  3. LEFLUNOMIDE [Suspect]
     Indication: PRODUCT USED FOR UNKNOWN INDICATION
  4. MIRCERA [Suspect]
     Indication: NEPHROGENIC ANAEMIA
     Route: 058
     Dates: start: 20100615, end: 20100921
  5. RECORMON [Suspect]
     Indication: NEPHROGENIC ANAEMIA
     Route: 058
     Dates: start: 20090407, end: 20090710

REACTIONS (1)
  - ANAEMIA [None]
